FAERS Safety Report 8583072-2 (Version None)
Quarter: 2012Q3

REPORT INFORMATION
  Report Type: 
  Country: None (occurrence: None)
  Receive Date: 20120809
  Receipt Date: 20120802
  Transmission Date: 20120928
  Serious: Yes (Hospitalization)
  Sender: FDA-Public Use
  Company Number: GB-PFIZER INC-2012187872

PATIENT
  Age: 74 Year
  Sex: Female
  Weight: 66 kg

DRUGS (3)
  1. PLACEBO [Suspect]
     Indication: TRANSITIONAL CELL CARCINOMA
     Dosage: UNK
     Dates: start: 20120201, end: 20120723
  2. BLINDED NO SUBJECT DRUG [Suspect]
     Indication: TRANSITIONAL CELL CARCINOMA
     Dosage: UNK
     Dates: start: 20120201, end: 20120723
  3. CELECOXIB [Suspect]
     Indication: TRANSITIONAL CELL CARCINOMA
     Dosage: UNK
     Dates: start: 20120201, end: 20120723

REACTIONS (3)
  - COUGH [None]
  - ASPIRATION [None]
  - DYSPNOEA [None]
